FAERS Safety Report 18667847 (Version 2)
Quarter: 2021Q1

REPORT INFORMATION
  Report Type: Spontaneous
  Country: ES (occurrence: ES)
  Receive Date: 20201228
  Receipt Date: 20210107
  Transmission Date: 20210419
  Serious: Yes (Hospitalization, Other)
  Sender: FDA-Public Use
  Company Number: ES-ACCORD-212165

PATIENT
  Age: 32 Year
  Sex: Female

DRUGS (10)
  1. AZITHROMYCIN ANHYDROUS. [Interacting]
     Active Substance: AZITHROMYCIN ANHYDROUS
     Indication: COVID-19
     Dosage: 500 MILLIGRAM, 1X / DAY (EVERY 24 HOURS), 500 MG EVERY 24 HOURS FOR FIVE DAYS
     Route: 065
  2. HYDROXYCHLOROQUINE [Interacting]
     Active Substance: HYDROXYCHLOROQUINE
     Indication: COVID-19
     Dosage: 400 MILLIGRAM, 2X / DAY (EVERY 12 HOURS, LOADING DOSE ON FIRST DAY)
     Route: 065
  3. HYDROXYCHLOROQUINE [Interacting]
     Active Substance: HYDROXYCHLOROQUINE
     Indication: COVID-19
     Dosage: 200 MG EVERY 12 HOURS (FIRST DAY DOSE CHARGE)
     Route: 065
  4. OMEPRAZOLE. [Concomitant]
     Active Substance: OMEPRAZOLE
     Indication: HIATUS HERNIA
     Dosage: 20MG EVERY 12 HOURS
     Route: 065
  5. CEFDITOREN/CEFDITOREN PIVOXIL [Interacting]
     Active Substance: CEFDITOREN PIVOXIL
     Indication: COVID-19
     Dosage: 400 MILLIGRAM, 2X / DAY (EVERY 12 HOURS)
     Route: 065
  6. OMEPRAZOLE. [Interacting]
     Active Substance: OMEPRAZOLE
     Indication: HIATUS HERNIA
     Dosage: 20 MILLIGRAM, 2X / DAY (EVERY 12 HOURS)
     Route: 065
  7. CEFDITOREN/CEFDITOREN PIVOXIL [Interacting]
     Active Substance: CEFDITOREN PIVOXIL
     Indication: COVID-19
     Dosage: 400 MILLIGRAM, 2X / DAY (EVERY 12 HOURS)
     Route: 065
  8. HYDROXYCHLOROQUINE [Suspect]
     Active Substance: HYDROXYCHLOROQUINE
     Indication: COVID-19
     Dosage: 400 MILLIGRAM, 2X /DAY EVERY 12 HOURS, LOADING DOSE ON FIRST DAY
     Route: 065
  9. OMEPRAZOLE. [Interacting]
     Active Substance: OMEPRAZOLE
     Indication: HIATUS HERNIA
     Dosage: 20 MILLIGRAM, 2X / DAY (EVERY 12 HOURS)
     Route: 065
  10. CEFDITOREN/CEFDITOREN PIVOXIL [Concomitant]
     Active Substance: CEFDITOREN PIVOXIL
     Indication: COVID-19
     Dosage: 400 MG EVERY 12 HOURS
     Route: 065

REACTIONS (9)
  - Cardiac failure chronic [Unknown]
  - Mitral valve incompetence [Unknown]
  - Off label use [Unknown]
  - Cardiac failure [Unknown]
  - Extrasystoles [Recovered/Resolved]
  - Drug interaction [Unknown]
  - Dyspnoea exertional [Unknown]
  - COVID-19 [Unknown]
  - Tachycardia [Recovered/Resolved]
